FAERS Safety Report 14941250 (Version 5)
Quarter: 2022Q2

REPORT INFORMATION
  Report Type: Other
  Country: CN (occurrence: None)
  Receive Date: 20180525
  Receipt Date: 20220404
  Transmission Date: 20220721
  Serious: Yes (Other)
  Sender: FDA-Public Use
  Company Number: CN-ROCHE-2129791

PATIENT
  Age: 51 Year
  Sex: Female
  Weight: 55 kg

DRUGS (1)
  1. BEVACIZUMAB [Suspect]
     Active Substance: BEVACIZUMAB
     Indication: Colon cancer
     Route: 041
     Dates: start: 20140422, end: 20211229

REACTIONS (6)
  - Intestinal obstruction [Unknown]
  - Nasopharyngitis [Unknown]
  - Cough [Unknown]
  - Gingival bleeding [Unknown]
  - Protein urine present [Unknown]
  - Hypertension [Unknown]
